FAERS Safety Report 6438257-8 (Version None)
Quarter: 2009Q4

REPORT INFORMATION
  Report Type: 
  Country: None (occurrence: None)
  Receive Date: 20091112
  Receipt Date: 20081106
  Transmission Date: 20100525
  Serious: No
  Sender: FDA-Public Use
  Company Number: US-ASTRAZENECA-2009UW16245

PATIENT
  Age: 49 Year
  Sex: Male

DRUGS (2)
  1. PRILOSEC OTC [Suspect]
     Indication: DYSPEPSIA
     Dosage: 1 TABLET, 1 /DAY FOR 30 DAYS
     Route: 048
     Dates: start: 20080804, end: 20080903
  2. PRILOSEC OTC [Suspect]
     Dosage: 1 TABLET, 2 /DAY FOR 60 DAYS
     Route: 048
     Dates: start: 20080904, end: 20081103

REACTIONS (3)
  - CONDITION AGGRAVATED [None]
  - DRUG INEFFECTIVE [None]
  - DYSPEPSIA [None]
